FAERS Safety Report 7581205-8 (Version None)
Quarter: 2011Q2

REPORT INFORMATION
  Report Type: 
  Country: None (occurrence: None)
  Receive Date: 20110629
  Receipt Date: 20110627
  Transmission Date: 20111010
  Serious: Yes (Disabling, Other)
  Sender: FDA-Public Use
  Company Number: US-PFIZER INC-2011142911

PATIENT
  Sex: Female
  Weight: 49.887 kg

DRUGS (2)
  1. QUETIAPINE [Concomitant]
     Indication: ANXIETY
     Dosage: UNK
  2. ZOLOFT [Suspect]
     Indication: DEPRESSION
     Dosage: 100 MG, 2X/DAY
     Route: 048
     Dates: start: 20100101, end: 20110623

REACTIONS (7)
  - AGITATION [None]
  - ANXIETY [None]
  - SOCIAL AVOIDANT BEHAVIOUR [None]
  - BIPOLAR DISORDER [None]
  - DEPRESSION [None]
  - ANGER [None]
  - SUICIDAL IDEATION [None]
